FAERS Safety Report 5998021-0 (Version None)
Quarter: 2008Q4

REPORT INFORMATION
  Report Type: 
  Country: None (occurrence: None)
  Receive Date: 20081211
  Receipt Date: 20081125
  Transmission Date: 20090506
  Serious: Yes (Hospitalization)
  Sender: FDA-Public Use
  Company Number: KV200800535

PATIENT
  Age: 85 Year
  Sex: Female
  Weight: 43.1 kg

DRUGS (1)
  1. ISOSORBIDE DINITRATE [Suspect]
     Indication: CARDIAC DISORDER
     Dosage: 60 MG, QD, ORAL
     Route: 048

REACTIONS (6)
  - DIARRHOEA [None]
  - DISORIENTATION [None]
  - DIZZINESS [None]
  - FATIGUE [None]
  - PRODUCT QUALITY ISSUE [None]
  - VOMITING [None]
